FAERS Safety Report 4767763-7 (Version None)
Quarter: 2005Q3

REPORT INFORMATION
  Report Type: 
  Country: None (occurrence: None)
  Receive Date: 20050913
  Receipt Date: 20050912
  Transmission Date: 20060218
  Serious: Yes (Life-Threatening)
  Sender: FDA-Public Use
  Company Number: PHFR2005GB03023

PATIENT
  Age: 58 Year
  Sex: Female

DRUGS (3)
  1. VALSARTAN [Suspect]
     Dosage: 160 MG, QD
     Route: 048
     Dates: start: 20041201
  2. PHENYTOIN [Suspect]
     Dosage: 200 MG, BID
     Route: 048
     Dates: start: 20041201
  3. BENDROFLUAZIDE [Suspect]
     Dosage: 2.5 MG, QD
     Route: 048
     Dates: start: 20041201

REACTIONS (1)
  - EPILEPSY [None]
